FAERS Safety Report 4541882-2 (Version None)
Quarter: 2004Q4

REPORT INFORMATION
  Report Type: 
  Country: None (occurrence: None)
  Receive Date: 20041227
  Receipt Date: 20041213
  Transmission Date: 20050328
  Serious: Yes (Hospitalization)
  Sender: FDA-Public Use
  Company Number: 2004107626

PATIENT
  Age: 82 Year
  Sex: Female

DRUGS (6)
  1. CELEBREX [Suspect]
     Indication: PAIN
     Dosage: 200 MG (200 MG, QD), ORAL
     Route: 048
     Dates: start: 20040501, end: 20041101
  2. DIOSMIN (DIOSMIN) [Concomitant]
  3. ALPRAZOLAM [Concomitant]
  4. DIGOXIN [Concomitant]
  5. PRINZIDE [Concomitant]
  6. PIRACETAM (PIRACETAM) [Concomitant]

REACTIONS (2)
  - FACE OEDEMA [None]
  - PERIORBITAL OEDEMA [None]
